FAERS Safety Report 5758140-0 (Version None)
Quarter: 2008Q2

REPORT INFORMATION
  Report Type: 
  Country: None (occurrence: None)
  Receive Date: 20080604
  Receipt Date: 20080604
  Transmission Date: 20081010
  Serious: Yes (Life-Threatening, Hospitalization, Other)
  Sender: FDA-Public Use
  Company Number: None

PATIENT
  Age: 38 Year
  Sex: Female
  Weight: 86.1834 kg

DRUGS (2)
  1. HEPARIN [Suspect]
     Indication: IMPAIRED GASTRIC EMPTYING
     Dosage: 5ML 1XDAY 1XDAY
     Dates: start: 20070101, end: 20080206
  2. HEPARIN [Suspect]

REACTIONS (3)
  - MALAISE [None]
  - PHARMACEUTICAL PRODUCT COMPLAINT [None]
  - THERAPEUTIC PRODUCT CONTAMINATION [None]
